FAERS Safety Report 11525430 (Version 1)
Quarter: 2015Q3

REPORT INFORMATION
  Report Type: Spontaneous
  Country: US (occurrence: US)
  Receive Date: 20150918
  Receipt Date: 20150918
  Transmission Date: 20151125
  Serious: No
  Sender: FDA-Public Use
  Company Number: US-TARO-2014TAR00660

PATIENT
  Sex: Male
  Weight: 56.69 kg

DRUGS (4)
  1. HALOBETASOL PROPIONATE CREAM 0.05% [Suspect]
     Active Substance: HALOBETASOL PROPIONATE
     Indication: SKIN EXFOLIATION
     Dosage: UNK
     Dates: start: 2011
  2. CHANTIX [Suspect]
     Active Substance: VARENICLINE TARTRATE
     Indication: SMOKING CESSATION THERAPY
     Dosage: UNK
     Dates: start: 201011, end: 201101
  3. ALBUTEROL NEBULIZER [Concomitant]
     Active Substance: ALBUTEROL
     Route: 055
  4. OXYGEN. [Concomitant]
     Active Substance: OXYGEN

REACTIONS (1)
  - Drug ineffective [Not Recovered/Not Resolved]

NARRATIVE: CASE EVENT DATE: 2011
